FAERS Safety Report 17037764 (Version 1)
Quarter: 2019Q4

REPORT INFORMATION
  Report Type: Spontaneous
  Country: US (occurrence: US)
  Receive Date: 20191115
  Receipt Date: 20191115
  Transmission Date: 20200122
  Serious: Yes (Other)
  Sender: FDA-Public Use
  Company Number: US-PFIZER INC-2019493517

PATIENT
  Age: 78 Year
  Sex: Female
  Weight: 62.41 kg

DRUGS (1)
  1. LORAZEPAM. [Suspect]
     Active Substance: LORAZEPAM
     Indication: ANXIETY
     Dosage: 0.5 MG, AS NEEDED (LORAZEPAM 0.5 MG UP TO TID [THRICE DAILY] OR LESS AS NEEDED)
     Dates: start: 2009

REACTIONS (1)
  - Dementia [Unknown]
